FAERS Safety Report 12721468 (Version 1)
Quarter: 2016Q3

REPORT INFORMATION
  Report Type: Spontaneous
  Country: DE (occurrence: DE)
  Receive Date: 20160907
  Receipt Date: 20160907
  Transmission Date: 20161109
  Serious: Yes (Other)
  Sender: FDA-Public Use
  Company Number: DE-SA-2016SA160643

PATIENT
  Sex: Male

DRUGS (2)
  1. LANTUS [Suspect]
     Active Substance: INSULIN GLARGINE
     Route: 065
  2. APIDRA [Suspect]
     Active Substance: INSULIN GLULISINE
     Route: 065

REACTIONS (3)
  - Ketoacidosis [Unknown]
  - Product use issue [Unknown]
  - Glycosylated haemoglobin increased [Unknown]
